FAERS Safety Report 8532968-6 (Version None)
Quarter: 2012Q3

REPORT INFORMATION
  Report Type: 
  Country: None (occurrence: None)
  Receive Date: 20120724
  Receipt Date: 20120716
  Transmission Date: 20120928
  Serious: Yes (Hospitalization)
  Sender: FDA-Public Use
  Company Number: CA-JNJFOC-20120314088

PATIENT
  Sex: Male

DRUGS (10)
  1. TRIDURAL [Concomitant]
     Route: 065
  2. ADVIL [Concomitant]
     Route: 065
  3. COUMADIN [Concomitant]
     Route: 065
     Dates: start: 20120101
  4. LISINOPRIL [Concomitant]
     Route: 065
     Dates: start: 20120101
  5. SIMPONI [Suspect]
     Indication: ANKYLOSING SPONDYLITIS
     Route: 058
     Dates: start: 20111007
  6. VENTOLIN [Concomitant]
     Route: 065
  7. SIMPONI [Suspect]
     Indication: CROHN'S DISEASE
     Route: 058
     Dates: start: 20111007
  8. INDOMETHACIN [Concomitant]
  9. NEXIUM [Concomitant]
     Route: 065
  10. METHOTREXATE [Concomitant]
     Route: 065

REACTIONS (4)
  - DEEP VEIN THROMBOSIS [None]
  - ARTHROPATHY [None]
  - FREQUENT BOWEL MOVEMENTS [None]
  - EXTRASYSTOLES [None]
